FAERS Safety Report 14030875 (Version 2)
Quarter: 2020Q3

REPORT INFORMATION
  Report Type: Report from Study
  Country: US (occurrence: US)
  Receive Date: 20171002
  Receipt Date: 20200730
  Transmission Date: 20201102
  Serious: Yes (Disabling, Other)
  Sender: FDA-Public Use
  Company Number: US-009507513-1709USA009825

PATIENT
  Age: 54 Year
  Sex: Female

DRUGS (7)
  1. PEMBROLIZUMAB. [Suspect]
     Active Substance: PEMBROLIZUMAB
     Indication: MALIGNANT MELANOMA STAGE IV
     Dosage: EVERY 3 WEEKS
     Route: 042
     Dates: start: 201708, end: 201803
  2. CYMBALTA [Concomitant]
     Active Substance: DULOXETINE HYDROCHLORIDE
     Indication: DEPRESSION
     Dosage: TWO 60MG PILLS
  3. OMEPRAZOLE. [Concomitant]
     Active Substance: OMEPRAZOLE
     Indication: GASTROOESOPHAGEAL REFLUX DISEASE
  4. PEMBROLIZUMAB. [Suspect]
     Active Substance: PEMBROLIZUMAB
     Dosage: UNK
     Dates: start: 202005
  5. REMERON [Concomitant]
     Active Substance: MIRTAZAPINE
     Indication: ANTIDEPRESSANT THERAPY
     Dosage: 15MG ONCE A DAY
  6. COPAXONE [Concomitant]
     Active Substance: GLATIRAMER ACETATE
     Indication: MULTIPLE SCLEROSIS
     Dosage: 3 TIMES A WEEK
  7. GABAPENTIN. [Concomitant]
     Active Substance: GABAPENTIN
     Indication: SCAR PAIN

REACTIONS (13)
  - Multiple sclerosis relapse [Unknown]
  - Adverse event [Recovered/Resolved]
  - Pain [Unknown]
  - Myalgia [Unknown]
  - Stomatitis [Recovering/Resolving]
  - Malignant neoplasm progression [Unknown]
  - Skin ulcer [Not Recovered/Not Resolved]
  - Arthralgia [Unknown]
  - Fall [Unknown]
  - Intervertebral disc degeneration [Unknown]
  - Fatigue [Unknown]
  - Gait inability [Unknown]
  - Depression [Unknown]

NARRATIVE: CASE EVENT DATE: 202001
